FAERS Safety Report 14763505 (Version 3)
Quarter: 2018Q2

REPORT INFORMATION
  Report Type: Spontaneous
  Country: DE (occurrence: DE)
  Receive Date: 20180416
  Receipt Date: 20180524
  Transmission Date: 20180711
  Serious: Yes (Hospitalization)
  Sender: FDA-Public Use
  Company Number: DE-LPDUSPRD-20180537

PATIENT
  Age: 66 Year
  Sex: Female

DRUGS (16)
  1. BICANORM [Concomitant]
     Active Substance: SODIUM BICARBONATE
     Dosage: UNKNOWN
     Route: 065
  2. BISOPROLOL [Concomitant]
     Active Substance: BISOPROLOL
     Dosage: 10 MG (1 IN 1 D)
     Route: 065
  3. NOVALGIN (METAMIZOLE SODIUM) [Concomitant]
     Active Substance: METAMIZOLE SODIUM
     Dosage: 500 MG
     Route: 065
  4. MOVICOL BEUTEL [Concomitant]
     Dosage: UNKNOWN
     Route: 065
  5. FERINJECT [Suspect]
     Active Substance: FERRIC CARBOXYMALTOSE
     Dosage: 1000 MG ( 2X 500)
     Route: 041
     Dates: start: 20180209, end: 20180209
  6. ELIQUIS [Concomitant]
     Active Substance: APIXABAN
     Dosage: 5 MG
     Route: 065
  7. AMIODARONE [Concomitant]
     Active Substance: AMIODARONE
     Dosage: 200 MG
     Route: 065
  8. ATORVASTATIN [Concomitant]
     Active Substance: ATORVASTATIN
     Dosage: 20 MG ( 1 IN 1 D)
     Route: 065
  9. AMLODIPINE [Concomitant]
     Active Substance: AMLODIPINE BESYLATE
     Dosage: 20 MG
     Route: 065
  10. L-THYROXINE [Concomitant]
     Active Substance: LEVOTHYROXINE
     Dosage: 100 MCG (1 IN 1 D)
     Route: 065
  11. ZOP [Concomitant]
     Dosage: 7.5 MG
     Route: 065
  12. CIBACEN [Concomitant]
     Active Substance: BENAZEPRIL HYDROCHLORIDE
     Dosage: 20 MG 1 IN 1 D
     Route: 065
  13. ACTRAPID NACH BZ [Concomitant]
     Dosage: UNKNOWN
     Route: 065
  14. INSULIN [Concomitant]
     Active Substance: INSULIN NOS
     Dosage: UNKNOWN
     Route: 065
  15. JANUMET [Concomitant]
     Active Substance: METFORMIN HYDROCHLORIDE\SITAGLIPTIN PHOSPHATE
     Dosage: 50/1000
     Route: 065
  16. PANTOZOL [Concomitant]
     Active Substance: PANTOPRAZOLE SODIUM
     Dosage: 20 MG
     Route: 065

REACTIONS (7)
  - Dizziness [Recovering/Resolving]
  - Abdominal pain [Recovering/Resolving]
  - Decreased appetite [Recovering/Resolving]
  - Feeling abnormal [Recovering/Resolving]
  - Tachycardia [Recovering/Resolving]
  - Vomiting [Recovering/Resolving]
  - Nausea [Recovering/Resolving]

NARRATIVE: CASE EVENT DATE: 20180210
